FAERS Safety Report 12099604 (Version 1)
Quarter: 2016Q1

REPORT INFORMATION
  Report Type: Spontaneous
  Country: US (occurrence: US)
  Receive Date: 20160222
  Receipt Date: 20160222
  Transmission Date: 20160526
  Serious: Yes (Other)
  Sender: FDA-Public Use
  Company Number: US-BAYER-2016-029052

PATIENT
  Age: 71 Year
  Sex: Male
  Weight: 74.83 kg

DRUGS (3)
  1. SENOKOT [Concomitant]
     Active Substance: SENNOSIDES
  2. MIRALAX [Suspect]
     Active Substance: POLYETHYLENE GLYCOL 3350
     Indication: CONSTIPATION
     Dosage: 1 DF, UNK
     Route: 048
     Dates: start: 2015
  3. MORPHINE [Concomitant]
     Active Substance: MORPHINE

REACTIONS (5)
  - Choking sensation [None]
  - Off label use [None]
  - Drug ineffective [None]
  - Hypophagia [None]
  - Dyspepsia [None]

NARRATIVE: CASE EVENT DATE: 2015
